FAERS Safety Report 11155052 (Version 1)
Quarter: 2015Q2

REPORT INFORMATION
  Report Type: Spontaneous
  Country: FR (occurrence: None)
  Receive Date: 20150529
  Receipt Date: 20150529
  Transmission Date: 20150821
  Serious: Yes (Life-Threatening, Hospitalization, Other)
  Sender: FDA-Public Use
  Company Number: ADR-2015-01034

PATIENT
  Age: 41 Year
  Sex: Female

DRUGS (2)
  1. BACLOFEN UNKNOWN (BACLOFEN INTRATHECAL) [Suspect]
     Active Substance: BACLOFEN
     Indication: ALCOHOLISM
     Dates: start: 20131023, end: 20131023
  2. ANALGESICS (UNKNOWN) [Suspect]
     Active Substance: UNSPECIFIED INGREDIENT

REACTIONS (9)
  - Wound haemorrhage [None]
  - Rib fracture [None]
  - Post-traumatic amnestic disorder [None]
  - Intentional overdose [None]
  - Agitation [None]
  - Pneumonia aspiration [None]
  - Drug level increased [None]
  - Fall [None]
  - Loss of consciousness [None]

NARRATIVE: CASE EVENT DATE: 20131023
